FAERS Safety Report 19284392 (Version 1)
Quarter: 2021Q2

REPORT INFORMATION
  Report Type: Spontaneous
  Country: US (occurrence: US)
  Receive Date: 20210521
  Receipt Date: 20210521
  Transmission Date: 20210717
  Serious: Yes (Other)
  Sender: FDA-Public Use
  Company Number: US-SA-2021SA159502

PATIENT
  Age: 73 Year
  Sex: Female

DRUGS (2)
  1. CLOPIDOGREL BISULFATE. [Suspect]
     Active Substance: CLOPIDOGREL BISULFATE
  2. ACETYLSALICYLIC ACID [Suspect]
     Active Substance: ASPIRIN

REACTIONS (6)
  - Vessel perforation [Recovered/Resolved]
  - Pericardial fibrosis [Recovered/Resolved]
  - Dyspnoea [Recovered/Resolved]
  - Pericarditis constrictive [Recovered/Resolved]
  - Pericardial effusion [Recovered/Resolved]
  - Pericardial haemorrhage [Recovered/Resolved]
